FAERS Safety Report 5804858-0 (Version None)
Quarter: 2008Q3

REPORT INFORMATION
  Report Type: 
  Country: None (occurrence: None)
  Receive Date: 20080707
  Receipt Date: 20080407
  Transmission Date: 20090109
  Serious: Yes (Death)
  Sender: FDA-Public Use
  Company Number: 401213

PATIENT
  Age: 14 Year
  Sex: Female
  Weight: 68 kg

DRUGS (4)
  1. CELLCEPT [Suspect]
     Indication: PROPHYLAXIS AGAINST TRANSPLANT REJECTION
     Dosage: ORAL
     Route: 048
     Dates: start: 19940101, end: 20030101
  2. PROGRAF [Suspect]
     Indication: PROPHYLAXIS AGAINST TRANSPLANT REJECTION
     Dates: start: 19940101, end: 20030101
  3. NEORAL [Suspect]
     Indication: PROPHYLAXIS AGAINST TRANSPLANT REJECTION
     Dates: start: 19940101, end: 20030101
  4. STEROIDS NOS (STEROID NOS) [Suspect]
     Indication: PROPHYLAXIS AGAINST TRANSPLANT REJECTION
     Dates: start: 19940101, end: 20030101

REACTIONS (6)
  - DIARRHOEA [None]
  - NAUSEA [None]
  - RETCHING [None]
  - SEPSIS [None]
  - TRANSPLANT REJECTION [None]
  - VOMITING [None]
